FAERS Safety Report 16634080 (Version 2)
Quarter: 2019Q3

REPORT INFORMATION
  Report Type: Spontaneous
  Country: US (occurrence: US)
  Receive Date: 20190725
  Receipt Date: 20190829
  Transmission Date: 20191004
  Serious: No
  Sender: FDA-Public Use
  Company Number: US-AMGEN-USASP2019116717

PATIENT
  Age: 67 Year
  Sex: Female
  Weight: 65.3 kg

DRUGS (7)
  1. PROPRANOL [Concomitant]
     Active Substance: PROPRANOLOL HYDROCHLORIDE
     Dosage: 60 MILLIGRAM, 4TH DOSE
  2. SENSIPAR [Suspect]
     Active Substance: CINACALCET HYDROCHLORIDE
     Indication: PRODUCT USED FOR UNKNOWN INDICATION
     Dosage: 30 MILLIGRAM, QD
     Route: 048
     Dates: start: 20190621
  3. AMLODIPINE [Concomitant]
     Active Substance: AMLODIPINE BESYLATE
     Dosage: 5 MILLIGRAM
  4. SENSIPAR [Suspect]
     Active Substance: CINACALCET HYDROCHLORIDE
     Dosage: 15 MILLIGRAM
     Route: 048
     Dates: start: 20190719
  5. PROPRANOL [Concomitant]
     Active Substance: PROPRANOLOL HYDROCHLORIDE
     Indication: HYPERTENSION
     Dosage: 180 MILLIGRAM, QD
     Dates: start: 2004
  6. PROPRANOL [Concomitant]
     Active Substance: PROPRANOLOL HYDROCHLORIDE
     Dosage: 40 MILLIGRAM, 3 DOSES AT 5 HOURS INTERVALS
  7. MAGNESIUM [Concomitant]
     Active Substance: MAGNESIUM
     Indication: MIGRAINE PROPHYLAXIS
     Dosage: 250 MILLIGRAM

REACTIONS (10)
  - Hypertension [Unknown]
  - Oedema peripheral [Unknown]
  - Oral pain [Not Recovered/Not Resolved]
  - Hypercalcaemia [Recovered/Resolved]
  - Blood calcium decreased [Unknown]
  - Vomiting [Recovered/Resolved]
  - Blood parathyroid hormone abnormal [Unknown]
  - Dehydration [Unknown]
  - Gastric disorder [Unknown]
  - Blood albumin decreased [Unknown]

NARRATIVE: CASE EVENT DATE: 2019
